FAERS Safety Report 7289701-8 (Version None)
Quarter: 2011Q1

REPORT INFORMATION
  Report Type: 
  Country: None (occurrence: None)
  Receive Date: 20110214
  Receipt Date: 20110129
  Transmission Date: 20110831
  Serious: No
  Sender: FDA-Public Use
  Company Number: US-BIOGENIDEC-2010BI038183

PATIENT
  Sex: Male

DRUGS (1)
  1. TYSABRI [Suspect]
     Indication: MULTIPLE SCLEROSIS
     Route: 042
     Dates: start: 20070221

REACTIONS (8)
  - DIPLOPIA [None]
  - ABASIA [None]
  - DRUG INEFFECTIVE [None]
  - VISION BLURRED [None]
  - MUSCLE ATROPHY [None]
  - NUCLEAR MAGNETIC RESONANCE IMAGING ABNORMAL [None]
  - BLINDNESS TRANSIENT [None]
  - FATIGUE [None]
